FAERS Safety Report 9503524 (Version 2)
Quarter: 2013Q4

REPORT INFORMATION
  Report Type: Report from Study
  Country: US (occurrence: US)
  Receive Date: 20130226
  Receipt Date: 20131204
  Transmission Date: 20140711
  Serious: Yes (Hospitalization)
  Sender: FDA-Public Use
  Company Number: PHEH2012US019821

PATIENT
  Sex: Female

DRUGS (2)
  1. TOBI [Suspect]
     Indication: CYSTIC FIBROSIS
     Dosage: UNK
     Dates: start: 1997
  2. TOBI [Suspect]
     Dosage: UNK
     Dates: start: 2000, end: 201302

REACTIONS (2)
  - Cystic fibrosis [Recovering/Resolving]
  - Maternal exposure during pregnancy [Unknown]
